FAERS Safety Report 24709311 (Version 1)
Quarter: 2024Q4

REPORT INFORMATION
  Report Type: Spontaneous
  Country: DE (occurrence: DE)
  Receive Date: 20241208
  Receipt Date: 20241208
  Transmission Date: 20250115
  Serious: Yes (Other)
  Sender: ORGANON
  Company Number: DE-ORGANON-O2412DEU000277

PATIENT
  Sex: Male

DRUGS (1)
  1. MAXALT [Suspect]
     Active Substance: RIZATRIPTAN BENZOATE
     Dosage: UNK

REACTIONS (3)
  - Drug dependence [Unknown]
  - Product dose omission issue [Unknown]
  - Product availability issue [Unknown]
